FAERS Safety Report 18051347 (Version 3)
Quarter: 2021Q1

REPORT INFORMATION
  Report Type: Report from Study
  Country: JP (occurrence: JP)
  Receive Date: 20200721
  Receipt Date: 20210115
  Transmission Date: 20210419
  Serious: Yes (Life-Threatening, Hospitalization, Congenital Anomaly, Other)
  Sender: FDA-Public Use
  Company Number: JP-ASTELLAS-2020JP010524

PATIENT
  Age: 0 Day
  Sex: Male

DRUGS (3)
  1. ALDOMET M [Concomitant]
     Active Substance: METHYLDOPA
     Indication: PRODUCT USED FOR UNKNOWN INDICATION
     Dosage: 750 MG/DAY, UNKNOWN FREQ.
     Route: 064
     Dates: start: 20150327, end: 20150330
  2. TACROLIMUS. [Suspect]
     Active Substance: TACROLIMUS
     Indication: SYSTEMIC LUPUS ERYTHEMATOSUS
     Dosage: 3 MG/DAY, UNKNOWN FREQ.
     Route: 064
     Dates: start: 20150106
  3. PREDONINE [Concomitant]
     Active Substance: PREDNISOLONE
     Indication: PRODUCT USED FOR UNKNOWN INDICATION
     Dosage: 7 MG/DAY, UNKNOWN FREQ.
     Route: 064
     Dates: start: 2007

REACTIONS (2)
  - Dyschondrosteosis [Not Recovered/Not Resolved]
  - Premature baby [Unknown]

NARRATIVE: CASE EVENT DATE: 20150413
